FAERS Safety Report 8138086-3 (Version None)
Quarter: 2012Q1

REPORT INFORMATION
  Report Type: 
  Country: None (occurrence: None)
  Receive Date: 20120213
  Receipt Date: 20120203
  Transmission Date: 20120608
  Serious: Yes (Other)
  Sender: FDA-Public Use
  Company Number: US-007651

PATIENT
  Age: 41 Year
  Sex: Female
  Weight: 117.9352 kg

DRUGS (4)
  1. HYDROCHLOROTHIAZIDE [Concomitant]
  2. LISINOPRIL [Concomitant]
  3. NAMENDA [Concomitant]
  4. TRANEXAMIC ACID [Suspect]
     Indication: MENORRHAGIA
     Dosage: (ONE TABLET TID ORAL)
     Route: 048
     Dates: start: 20100801

REACTIONS (5)
  - SOMNOLENCE [None]
  - CONVULSION [None]
  - FEELING ABNORMAL [None]
  - MEMORY IMPAIRMENT [None]
  - FATIGUE [None]
